FAERS Safety Report 7090597-8 (Version None)
Quarter: 2010Q4

REPORT INFORMATION
  Report Type: 
  Country: None (occurrence: None)
  Receive Date: 20101109
  Receipt Date: 20080829
  Transmission Date: 20110411
  Serious: No
  Sender: FDA-Public Use
  Company Number: US-KINGPHARMUSA00001-K200801029

PATIENT
  Age: 47 Year
  Sex: Female
  Weight: 72.562 kg

DRUGS (7)
  1. EPIPEN [Suspect]
     Dosage: UNK, SINGLE
     Dates: start: 20080829, end: 20080829
  2. KADIAN [Concomitant]
     Indication: PAIN
     Dosage: UNK, QHS
  3. OXYCODONE HCL [Concomitant]
     Indication: BREAKTHROUGH PAIN
     Dosage: UNK, PRN
  4. OMEPRAZOLE [Concomitant]
     Indication: DYSPEPSIA
  5. ZOFRAN [Concomitant]
     Indication: NAUSEA
     Dosage: 8 MG, UNK
  6. ADVAIR DISKUS 100/50 [Concomitant]
     Indication: ASTHMA
     Dosage: UNK, BID
  7. SPIRIVA [Concomitant]
     Dosage: UNK, QD

REACTIONS (9)
  - ACCIDENTAL EXPOSURE [None]
  - DYSPNOEA [None]
  - EXPIRED DRUG ADMINISTERED [None]
  - INJECTION SITE ANAESTHESIA [None]
  - INJECTION SITE COLDNESS [None]
  - INJECTION SITE MOVEMENT IMPAIRMENT [None]
  - INJECTION SITE PAIN [None]
  - INJECTION SITE SWELLING [None]
  - PALPITATIONS [None]
